FAERS Safety Report 18359028 (Version 2)
Quarter: 2020Q4

REPORT INFORMATION
  Report Type: Spontaneous
  Country: US (occurrence: US)
  Receive Date: 20201008
  Receipt Date: 20201016
  Transmission Date: 20210114
  Serious: Yes (Hospitalization, Other)
  Sender: FDA-Public Use
  Company Number: US-ASTRAZENECA-2020SF27156

PATIENT
  Age: 17959 Day
  Sex: Male
  Weight: 117.5 kg

DRUGS (32)
  1. BENZONATATE. [Concomitant]
     Active Substance: BENZONATATE
  2. NORCO [Concomitant]
     Active Substance: ACETAMINOPHEN\HYDROCODONE BITARTRATE
  3. SMZ/TMP [Concomitant]
     Active Substance: SULFAMETHOXAZOLE\TRIMETHOPRIM
  4. FARXIGA [Suspect]
     Active Substance: DAPAGLIFLOZIN PROPANEDIOL
     Indication: WEIGHT DECREASED
     Route: 048
     Dates: start: 20160217, end: 201604
  5. TRIAMTERENE. [Concomitant]
     Active Substance: TRIAMTERENE
  6. TRAMADOL. [Concomitant]
     Active Substance: TRAMADOL
  7. HYDROCHLOROTHIAZIDE. [Concomitant]
     Active Substance: HYDROCHLOROTHIAZIDE
  8. TRIMETHOPRIM/HYDROCHLOROTHIAZIDE [Concomitant]
  9. METHYLPREDNISOLONE. [Concomitant]
     Active Substance: METHYLPREDNISOLONE
  10. NAPROXEN. [Concomitant]
     Active Substance: NAPROXEN
  11. ETODOLAC. [Concomitant]
     Active Substance: ETODOLAC
  12. FARXIGA [Suspect]
     Active Substance: DAPAGLIFLOZIN PROPANEDIOL
     Indication: TYPE 2 DIABETES MELLITUS
     Route: 048
     Dates: start: 20160217, end: 201604
  13. FARXIGA [Suspect]
     Active Substance: DAPAGLIFLOZIN PROPANEDIOL
     Indication: WEIGHT DECREASED
     Route: 048
     Dates: start: 20160616
  14. METFORMIN [Concomitant]
     Active Substance: METFORMIN HYDROCHLORIDE
  15. AMOXICILLIN. [Concomitant]
     Active Substance: AMOXICILLIN
  16. FARXIGA [Suspect]
     Active Substance: DAPAGLIFLOZIN PROPANEDIOL
     Indication: TYPE 2 DIABETES MELLITUS
     Route: 048
     Dates: start: 20160616
  17. TORADOL [Concomitant]
     Active Substance: KETOROLAC TROMETHAMINE
  18. NAPROSYN [Concomitant]
     Active Substance: NAPROXEN
  19. LEVAQUIN [Concomitant]
     Active Substance: LEVOFLOXACIN
  20. CLINDAMYCIN. [Concomitant]
     Active Substance: CLINDAMYCIN
  21. KENALOG [Concomitant]
     Active Substance: TRIAMCINOLONE ACETONIDE
  22. HYDROCODONE ACETAMINOPHENE [Concomitant]
  23. CLOTRIM/BETA [Concomitant]
  24. FARXIGA [Suspect]
     Active Substance: DAPAGLIFLOZIN PROPANEDIOL
     Indication: BLOOD PRESSURE ABNORMAL
     Route: 048
     Dates: start: 20160217, end: 201604
  25. TYLENOL [Concomitant]
     Active Substance: ACETAMINOPHEN
  26. KETOROLAC [Concomitant]
     Active Substance: KETOROLAC TROMETHAMINE
  27. AUGMENTIN [Concomitant]
     Active Substance: AMOXICILLIN\CLAVULANATE POTASSIUM
  28. PRAVASTATIN. [Concomitant]
     Active Substance: PRAVASTATIN
  29. BACTRIM [Concomitant]
     Active Substance: SULFAMETHOXAZOLE\TRIMETHOPRIM
  30. FARXIGA [Suspect]
     Active Substance: DAPAGLIFLOZIN PROPANEDIOL
     Indication: BLOOD PRESSURE ABNORMAL
     Route: 048
     Dates: start: 20160616
  31. AMARYL [Concomitant]
     Active Substance: GLIMEPIRIDE
  32. LISINOPRIL. [Concomitant]
     Active Substance: LISINOPRIL

REACTIONS (12)
  - Anal incontinence [Unknown]
  - Phimosis [Unknown]
  - Pain [Unknown]
  - Scar [Unknown]
  - Fournier^s gangrene [Unknown]
  - Epididymitis [Unknown]
  - Scrotal abscess [Unknown]
  - Sepsis [Unknown]
  - Cellulitis [Unknown]
  - Prostate cancer [Unknown]
  - Nerve injury [Unknown]
  - Balanoposthitis [Unknown]

NARRATIVE: CASE EVENT DATE: 20160404
